FAERS Safety Report 4666536-3 (Version None)
Quarter: 2005Q2

REPORT INFORMATION
  Report Type: 
  Country: None (occurrence: None)
  Receive Date: 20050518
  Receipt Date: 20050505
  Transmission Date: 20051028
  Serious: Yes (Other)
  Sender: FDA-Public Use
  Company Number: 2005071065

PATIENT
  Sex: Female
  Weight: 52.1637 kg

DRUGS (2)
  1. DILANTIN [Suspect]
     Indication: CONVULSION
     Dosage: 300 MG (100 MG, 3 IN 1 D), ORAL
     Route: 048
     Dates: start: 19960101
  2. PRILOSEC [Suspect]
     Indication: COUGH
     Dosage: ORAL
     Route: 048
     Dates: start: 20050301, end: 20050301

REACTIONS (10)
  - ABDOMINAL DISTENSION [None]
  - ABDOMINAL PAIN UPPER [None]
  - BACTERIAL INFECTION [None]
  - BURNING SENSATION [None]
  - COUGH [None]
  - ERUCTATION [None]
  - FLATULENCE [None]
  - INTERVERTEBRAL DISC COMPRESSION [None]
  - LUNG INFECTION [None]
  - PULMONARY MASS [None]
